FAERS Safety Report 10666742 (Version 2)
Quarter: 2015Q1

REPORT INFORMATION
  Report Type: Report from Study
  Country: JP (occurrence: JP)
  Receive Date: 20141222
  Receipt Date: 20150316
  Transmission Date: 20150720
  Serious: Yes (Death, Hospitalization)
  Sender: FDA-Public Use
  Company Number: JP-009507513-1412JPN009250

PATIENT
  Age: 60 Year
  Sex: Male

DRUGS (6)
  1. ADRIACIN [Concomitant]
     Active Substance: DOXORUBICIN HYDROCHLORIDE
     Indication: LYMPHOMA
     Dosage: 50 MG, QD
     Route: 051
     Dates: start: 20130522, end: 20130530
  2. ONCOVIN [Concomitant]
     Active Substance: VINCRISTINE SULFATE
     Indication: LYMPHOMA
     Dosage: 1.4 MG, QD
     Route: 051
     Dates: start: 20130522, end: 20130530
  3. PREDONINE [Concomitant]
     Active Substance: PREDNISOLONE\PREDNISOLONE ACETATE\PREDNISOLONE SODIUM SUCCINATE
     Indication: LYMPHOMA
     Dosage: 100 MG, QD
     Route: 065
     Dates: start: 20130522, end: 20130530
  4. ENDOXAN [Concomitant]
     Active Substance: CYCLOPHOSPHAMIDE
     Indication: LYMPHOMA
     Dosage: 750 MG, QD
     Route: 065
     Dates: start: 20130522, end: 20130526
  5. ISENTRESS [Suspect]
     Active Substance: RALTEGRAVIR POTASSIUM
     Indication: HIV INFECTION
     Dosage: 800 MG, QD (DIVIDED DOSE FREQUENCY UNKNOWN)
     Route: 048
     Dates: start: 20130510, end: 20130530
  6. TRUVADA [Concomitant]
     Active Substance: EMTRICITABINE\TENOFOVIR DISOPROXIL FUMARATE
     Indication: HIV INFECTION
     Dosage: 1 DF, QD
     Route: 048
     Dates: start: 20130510, end: 20130530

REACTIONS (1)
  - Lymphoma [Fatal]

NARRATIVE: CASE EVENT DATE: 20130530
